FAERS Safety Report 19261176 (Version 10)
Quarter: 2025Q1

REPORT INFORMATION
  Report Type: Report from Study
  Country: US (occurrence: US)
  Receive Date: 20210515
  Receipt Date: 20250107
  Transmission Date: 20250409
  Serious: Yes (Hospitalization, Other)
  Sender: TAKEDA
  Company Number: US-TAKEDA-US201909212

PATIENT
  Age: 85 Year
  Sex: Female

DRUGS (1)
  1. HUMAN IMMUNOGLOBULIN G\HYALURONIDASE RECOMBINANT HUMAN [Suspect]
     Active Substance: HUMAN IMMUNOGLOBULIN G\HYALURONIDASE (HUMAN RECOMBINANT)
     Indication: Primary immunodeficiency syndrome

REACTIONS (11)
  - Hip fracture [Unknown]
  - Fall [Unknown]
  - Skin cancer [Unknown]
  - Drug hypersensitivity [Unknown]
  - Neck pain [Unknown]
  - Illness [Unknown]
  - Infusion site pain [Unknown]
  - Headache [Unknown]
  - Dyspnoea [Unknown]
  - Insurance issue [Unknown]
  - Product use issue [Unknown]

NARRATIVE: CASE EVENT DATE: 20240719
